FAERS Safety Report 13286438 (Version 1)
Quarter: 2017Q1

REPORT INFORMATION
  Report Type: Spontaneous
  Country: US (occurrence: US)
  Receive Date: 20170301
  Receipt Date: 20170301
  Transmission Date: 20170428
  Serious: Yes (Death)
  Sender: FDA-Public Use
  Company Number: US-BAUSCH-BL-2016-027926

PATIENT
  Age: 71 Year
  Sex: Male

DRUGS (2)
  1. XENAZINE [Suspect]
     Active Substance: TETRABENAZINE
     Indication: HUNTINGTON^S DISEASE
     Route: 048
     Dates: start: 201608, end: 20170202
  2. XENAZINE [Suspect]
     Active Substance: TETRABENAZINE
     Indication: COORDINATION ABNORMAL

REACTIONS (5)
  - Fluid retention [Unknown]
  - Death [Fatal]
  - Somnolence [Unknown]
  - Dysphagia [Unknown]
  - Hospice care [Unknown]

NARRATIVE: CASE EVENT DATE: 2016
